FAERS Safety Report 9588069 (Version 1)
Quarter: 2013Q4

REPORT INFORMATION
  Report Type: Spontaneous
  Country: US (occurrence: US)
  Receive Date: 20131003
  Receipt Date: 20131003
  Transmission Date: 20140711
  Serious: No
  Sender: FDA-Public Use
  Company Number: US-AMGEN-USASP2012067954

PATIENT
  Sex: Female

DRUGS (15)
  1. ENBREL [Suspect]
     Indication: PRODUCT USED FOR UNKNOWN INDICATION
     Dosage: 50 MG, QWK
     Route: 058
  2. MULTIVITAMINS, PLAIN [Concomitant]
     Dosage: UNK
  3. COD LIVER OIL [Concomitant]
     Dosage: UNK
  4. OSTEO BI-FLEX [Concomitant]
     Dosage: ADVANCED
  5. CALCIUM [Concomitant]
     Dosage: 500 UNK
  6. CENTRUM                            /02217401/ [Concomitant]
     Dosage: UNK
  7. FISH OIL [Concomitant]
     Dosage: UNK
  8. FLAXSEED OIL [Concomitant]
     Dosage: UNK
  9. GARLIC                             /01570501/ [Concomitant]
     Dosage: 3 MG, UNK
  10. TEA, GREEN [Concomitant]
     Dosage: 150 MG, UNK
  11. VITAMIN D                          /00107901/ [Concomitant]
     Dosage: 50000UNT
  12. NIACIN [Concomitant]
     Dosage: 125 MG, UNK
  13. VITAMIN B12                        /00056201/ [Concomitant]
     Dosage: 500 MCG
  14. MAGNESIUM [Concomitant]
     Dosage: 300 MG, UNK
  15. SULFASALAZINE [Concomitant]
     Dosage: 500 MG, UNK

REACTIONS (1)
  - Injection site bruising [Unknown]
